FAERS Safety Report 9740593 (Version 1)
Quarter: 2013Q4

REPORT INFORMATION
  Report Type: Spontaneous
  Country: US (occurrence: US)
  Receive Date: 20131209
  Receipt Date: 20131209
  Transmission Date: 20140711
  Serious: No
  Sender: FDA-Public Use
  Company Number: US-BIOGENIDEC-2013BI094411

PATIENT
  Sex: Male
  Weight: 94 kg

DRUGS (6)
  1. TECFIDERA [Suspect]
     Indication: PRODUCT USED FOR UNKNOWN INDICATION
     Route: 048
  2. TECFIDERA [Suspect]
     Indication: PRODUCT USED FOR UNKNOWN INDICATION
     Route: 048
  3. VITAMIN D [Concomitant]
  4. NYQUIL [Concomitant]
  5. TYLENOL [Concomitant]
  6. IBUPROFEN [Concomitant]

REACTIONS (3)
  - Flatulence [Unknown]
  - Flushing [Unknown]
  - Abdominal pain upper [Unknown]
